FAERS Safety Report 22536301 (Version 1)
Quarter: 2023Q2

REPORT INFORMATION
  Report Type: Spontaneous
  Country: US (occurrence: US)
  Receive Date: 20230608
  Receipt Date: 20230608
  Transmission Date: 20230722
  Serious: Yes (Life-Threatening, Hospitalization, Other)
  Sender: FDA-Public Use
  Company Number: US-PFIZER INC-PV202300100372

PATIENT
  Age: 45 Year
  Sex: Female

DRUGS (6)
  1. LORAZEPAM [Suspect]
     Active Substance: LORAZEPAM
     Indication: Catatonia
     Dosage: 2 MG, 4X/DAY (EVERY 6 HOURS)
     Route: 030
  2. LORAZEPAM [Suspect]
     Active Substance: LORAZEPAM
     Dosage: 2 MG (EVERY 4 HOURS)
     Route: 042
  3. ZOLPIDEM [Suspect]
     Active Substance: ZOLPIDEM TARTRATE
     Indication: Catatonia
     Dosage: UNK
     Route: 048
  4. HALOPERIDOL [Concomitant]
     Active Substance: HALOPERIDOL
     Indication: Mania
     Dosage: UNK
     Route: 030
  5. QUETIAPINE [Concomitant]
     Active Substance: QUETIAPINE
     Indication: Mania
     Dosage: 0.5 MG, 2X/DAY
  6. QUETIAPINE [Concomitant]
     Active Substance: QUETIAPINE
     Dosage: 2 MG, 2X/DAY

REACTIONS (2)
  - Off label use [Unknown]
  - Drug ineffective for unapproved indication [Unknown]
